FAERS Safety Report 8343387-X (Version None)
Quarter: 2012Q1

REPORT INFORMATION
  Report Type: 
  Country: None (occurrence: None)
  Receive Date: 20120330
  Receipt Date: 20111212
  Transmission Date: 20120608
  Serious: Yes (Other)
  Sender: FDA-Public Use
  Company Number: PHEH2011US010538

PATIENT
  Age: 87 Year
  Sex: Female
  Weight: 61.2 kg

DRUGS (4)
  1. EXELON [Suspect]
     Indication: DEMENTIA
     Dosage: 4.6MG/24 HRS, TRANSDERMAL
     Route: 062
     Dates: start: 20111122, end: 20111201
  2. DICLOFENAC SODIUM [Concomitant]
  3. NAMENDA [Concomitant]
  4. OXYBUTYNIN [Concomitant]

REACTIONS (2)
  - RASH [None]
  - APPLICATION SITE RASH [None]
